FAERS Safety Report 7168413-5 (Version None)
Quarter: 2010Q4

REPORT INFORMATION
  Report Type: 
  Country: None (occurrence: None)
  Receive Date: 20101216
  Receipt Date: 20100107
  Transmission Date: 20110411
  Serious: No
  Sender: FDA-Public Use
  Company Number: US-AMGEN-KDL384370

PATIENT

DRUGS (4)
  1. ENBREL [Suspect]
     Indication: RHEUMATOID ARTHRITIS
     Dosage: 50 MG, QWK
     Route: 058
     Dates: start: 20090520
  2. ENBREL [Suspect]
     Indication: PSORIASIS
  3. LEFLUNOMIDE [Concomitant]
     Dosage: 20 MG, QD
     Route: 048
  4. SULFASALAZINE [Concomitant]
     Dosage: 200 MG, QD
     Route: 048

REACTIONS (7)
  - ARTHRITIS INFECTIVE [None]
  - DRUG INEFFECTIVE [None]
  - HEADACHE [None]
  - INJECTION SITE PAIN [None]
  - LIGAMENT OPERATION [None]
  - OSTEOARTHRITIS [None]
  - STAPHYLOCOCCAL INFECTION [None]
